FAERS Safety Report 6082220-6 (Version None)
Quarter: 2009Q1

REPORT INFORMATION
  Report Type: 
  Country: None (occurrence: None)
  Receive Date: 20090218
  Receipt Date: 20090212
  Transmission Date: 20090719
  Serious: Yes (Death)
  Sender: FDA-Public Use
  Company Number: B0559496A

PATIENT
  Age: 47 Year
  Sex: Female

DRUGS (3)
  1. MELPHALAN [Suspect]
     Indication: AMYLOIDOSIS
     Dosage: .18MGK CYCLIC
     Route: 048
     Dates: start: 20080503, end: 20081022
  2. LENALIDOMIDE [Suspect]
     Indication: AMYLOIDOSIS
     Dosage: 10MG PER DAY
     Route: 048
     Dates: start: 20080503, end: 20081022
  3. DEXAMETHASONE [Suspect]
     Indication: AMYLOIDOSIS
     Dosage: 40MG CYCLIC
     Route: 048
     Dates: start: 20080503, end: 20081022

REACTIONS (2)
  - BILE DUCT CANCER [None]
  - JAUNDICE [None]
